FAERS Safety Report 4603748-9 (Version None)
Quarter: 2005Q1

REPORT INFORMATION
  Report Type: 
  Country: None (occurrence: None)
  Receive Date: 20050308
  Receipt Date: 20050308
  Transmission Date: 20050727
  Serious: Yes (Life-Threatening, Hospitalization)
  Sender: FDA-Public Use
  Company Number: None

PATIENT
  Age: 67 Year
  Sex: Male
  Weight: 83.9154 kg

DRUGS (1)
  1. LAMISIL [Suspect]
     Indication: ONYCHOMYCOSIS
     Dosage: ONCE DAILY
     Dates: start: 20041229, end: 20050210

REACTIONS (9)
  - ABDOMINAL PAIN [None]
  - FACIAL PALSY [None]
  - HEPATIC LESION [None]
  - INFLAMMATION [None]
  - LABORATORY TEST ABNORMAL [None]
  - LIVER DISORDER [None]
  - PYREXIA [None]
  - SPLEEN DISORDER [None]
  - WEIGHT DECREASED [None]
